FAERS Safety Report 10235023 (Version 3)
Quarter: 2014Q4

REPORT INFORMATION
  Report Type: Spontaneous
  Country: IT (occurrence: IT)
  Receive Date: 20140613
  Receipt Date: 20141021
  Transmission Date: 20150528
  Serious: Yes (Other)
  Sender: FDA-Public Use
  Company Number: PHHY2014IT072766

PATIENT
  Age: 74 Year
  Sex: Female

DRUGS (5)
  1. ACIDO ZOLEDRONICO [Suspect]
     Active Substance: ZOLEDRONIC ACID
     Indication: METASTASES TO BONE
     Dosage: 4 MG, CYCLIC
     Route: 042
     Dates: start: 20130830, end: 20140313
  2. ZOMETA [Suspect]
     Active Substance: ZOLEDRONIC ACID
     Indication: METASTASES TO BONE
     Dosage: 4 MG, CYCLIC
     Route: 042
     Dates: start: 20120101, end: 20130830
  3. SUNITINIB [Concomitant]
     Active Substance: SUNITINIB
     Indication: RENAL CANCER
     Dosage: 37.5 MG
     Route: 048
     Dates: start: 20120515, end: 20130222
  4. SUTENT [Concomitant]
     Active Substance: SUNITINIB MALATE
     Indication: RENAL CANCER
     Dosage: 37.5 MG
     Route: 048
     Dates: start: 20120515, end: 20130222
  5. AFINITOR [Concomitant]
     Active Substance: EVEROLIMUS
     Indication: RENAL CANCER
     Dosage: 10 MG
     Route: 048
     Dates: start: 20130418, end: 20140224

REACTIONS (1)
  - Osteonecrosis of jaw [Recovering/Resolving]

NARRATIVE: CASE EVENT DATE: 20140313
